FAERS Safety Report 21604831 (Version 3)
Quarter: 2022Q4

REPORT INFORMATION
  Report Type: Spontaneous
  Country: US (occurrence: US)
  Receive Date: 20221116
  Receipt Date: 20221222
  Transmission Date: 20230113
  Serious: Yes (Other)
  Sender: FDA-Public Use
  Company Number: US-AMERICAN REGENT INC-2022003297

PATIENT
  Age: 43 Year
  Sex: Female

DRUGS (4)
  1. VENOFER [Suspect]
     Active Substance: IRON SUCROSE
     Indication: Iron deficiency
     Dosage: 500 MILLIGRAM IN 250 ML 0.9% SODIUM CHLORIDE
     Route: 042
     Dates: start: 20221108, end: 20221108
  2. VENOFER [Suspect]
     Active Substance: IRON SUCROSE
     Dosage: UNK
  3. VENOFER [Suspect]
     Active Substance: IRON SUCROSE
     Dosage: UNK
  4. VENOFER [Suspect]
     Active Substance: IRON SUCROSE
     Dosage: 100 MILLIGRAM
     Route: 042
     Dates: start: 202211, end: 202211

REACTIONS (7)
  - Skin burning sensation [Recovered/Resolved]
  - Urticaria [Recovered/Resolved]
  - Swelling [Recovered/Resolved]
  - Hypersensitivity [Recovered/Resolved]
  - Peripheral swelling [Recovered/Resolved]
  - Arthralgia [Recovered/Resolved]
  - Product quality issue [Unknown]

NARRATIVE: CASE EVENT DATE: 20221108
